FAERS Safety Report 11447239 (Version 1)
Quarter: 2015Q3

REPORT INFORMATION
  Report Type: Spontaneous
  Country: US (occurrence: US)
  Receive Date: 20150831
  Receipt Date: 20150831
  Transmission Date: 20151125
  Serious: No
  Sender: FDA-Public Use
  Company Number: US-ELI_LILLY_AND_COMPANY-US200903000657

PATIENT
  Age: 29 Year
  Sex: Female

DRUGS (1)
  1. CYMBALTA [Suspect]
     Active Substance: DULOXETINE HYDROCHLORIDE
     Indication: DEPRESSION
     Dosage: 30 MG, DAILY (1/D)
     Dates: start: 20090220

REACTIONS (5)
  - Alopecia [Not Recovered/Not Resolved]
  - Iron deficiency [Unknown]
  - Mydriasis [Recovering/Resolving]
  - Eye disorder [Recovering/Resolving]
  - Zinc deficiency [Unknown]

NARRATIVE: CASE EVENT DATE: 20090227
